FAERS Safety Report 20813378 (Version 6)
Quarter: 2023Q4

REPORT INFORMATION
  Report Type: Report from Study
  Country: JP (occurrence: JP)
  Receive Date: 20220511
  Receipt Date: 20231220
  Transmission Date: 20240109
  Serious: Yes (Death, Hospitalization, Other)
  Sender: FDA-Public Use
  Company Number: JP-ASTELLAS-2022JP006645

PATIENT
  Age: 74 Year
  Sex: Male
  Weight: 52 kg

DRUGS (21)
  1. ENFORTUMAB VEDOTIN [Suspect]
     Active Substance: ENFORTUMAB VEDOTIN
     Indication: Malignant neoplasm of renal pelvis
     Dosage: 60 MG/BODY (1.15 MG/KG), DAY 1,8,15
     Route: 041
     Dates: start: 20220411, end: 20220425
  2. ENFORTUMAB VEDOTIN [Suspect]
     Active Substance: ENFORTUMAB VEDOTIN
     Indication: Transitional cell carcinoma
  3. ZOLPIDEM TARTRATE [Concomitant]
     Active Substance: ZOLPIDEM TARTRATE
     Indication: Insomnia
     Route: 048
  4. ETIZOLAM [Concomitant]
     Active Substance: ETIZOLAM
     Indication: Insomnia
     Dosage: 0.5 MG, ONCE DAILY
     Route: 048
  5. FEBUXOSTAT [Concomitant]
     Active Substance: FEBUXOSTAT
     Indication: Hyperuricaemia
     Route: 048
  6. OPALMON [Concomitant]
     Active Substance: LIMAPROST
     Indication: Spinal stenosis
     Route: 048
  7. REBAMIPIDE [Concomitant]
     Active Substance: REBAMIPIDE
     Indication: Gastric ulcer
     Route: 048
  8. AMLODIPINE [Concomitant]
     Active Substance: AMLODIPINE BESYLATE
     Indication: Product used for unknown indication
     Dosage: UNK UNK, UNKNOWN FREQ.
     Route: 065
  9. GLYCOSAMINOGLYCANS [Concomitant]
     Active Substance: GLYCOSAMINOGLYCANS
     Indication: Eczema
     Dosage: UNK UNK, UNKNOWN FREQ.
     Route: 065
  10. DIPHENHYDRAMINE [Concomitant]
     Active Substance: DIPHENHYDRAMINE
     Indication: Eczema
     Dosage: UNK UNK, UNKNOWN FREQ.
     Route: 065
  11. BETAMETHASONE DIPROPIONATE [Concomitant]
     Active Substance: BETAMETHASONE DIPROPIONATE
     Indication: Eczema
     Dosage: UNK UNK, UNKNOWN FREQ.
     Route: 065
  12. GEMCITABINE [Concomitant]
     Active Substance: GEMCITABINE
     Indication: Product used for unknown indication
     Dosage: UNK UNK, UNKNOWN FREQ.
     Route: 065
  13. CISPLATIN [Concomitant]
     Active Substance: CISPLATIN
     Indication: Product used for unknown indication
     Dosage: UNK UNK, UNKNOWN FREQ.
     Route: 065
  14. KEYTRUDA [Concomitant]
     Active Substance: PEMBROLIZUMAB
     Indication: Product used for unknown indication
     Dosage: UNK UNK, EVERY 3 WEEKS
     Route: 065
  15. SILODOSIN [Concomitant]
     Active Substance: SILODOSIN
     Indication: Benign prostatic hyperplasia
     Route: 048
  16. NAPROXEN SODIUM [Concomitant]
     Active Substance: NAPROXEN\NAPROXEN SODIUM
     Indication: Malignant neoplasm of renal pelvis
     Route: 048
     Dates: start: 20210802
  17. Adona [Concomitant]
     Indication: Malignant neoplasm of renal pelvis
     Route: 048
     Dates: start: 20211208
  18. OLANZAPINE [Concomitant]
     Active Substance: OLANZAPINE
     Indication: Nausea
     Route: 048
     Dates: start: 20220418
  19. OLANZAPINE [Concomitant]
     Active Substance: OLANZAPINE
     Indication: Malignant neoplasm of renal pelvis
  20. DECADRON [Concomitant]
     Active Substance: DEXAMETHASONE
     Indication: Nausea
     Route: 048
     Dates: start: 20220425
  21. DECADRON [Concomitant]
     Active Substance: DEXAMETHASONE
     Indication: Malignant neoplasm of renal pelvis

REACTIONS (5)
  - Meningitis listeria [Fatal]
  - Nausea [Fatal]
  - Pancytopenia [Recovered/Resolved]
  - Decreased appetite [Unknown]
  - Muscular weakness [Unknown]

NARRATIVE: CASE EVENT DATE: 20220418
